FAERS Safety Report 5234574-8 (Version None)
Quarter: 2007Q1

REPORT INFORMATION
  Report Type: 
  Country: None (occurrence: None)
  Receive Date: 20070209
  Receipt Date: 20070206
  Transmission Date: 20070707
  Serious: Yes (Death, Other)
  Sender: FDA-Public Use
  Company Number: PHNU2006DE02730

PATIENT
  Age: 75 Year
  Sex: Male

DRUGS (1)
  1. ZOMETA [Suspect]
     Indication: METASTASIS
     Dosage: 4 MG EVERY 3, LATER EVERY 6 WEEKS
     Route: 042
     Dates: start: 20051021, end: 20060801

REACTIONS (4)
  - BIOPSY SITE UNSPECIFIED ABNORMAL [None]
  - DEATH [None]
  - INCISIONAL DRAINAGE [None]
  - OSTEONECROSIS [None]
